FAERS Safety Report 20609538 (Version 1)
Quarter: 2022Q1

REPORT INFORMATION
  Report Type: Other
  Country: MY (occurrence: None)
  Receive Date: 20220318
  Receipt Date: 20220318
  Transmission Date: 20220423
  Serious: Yes (Hospitalization)
  Sender: FDA-Public Use
  Company Number: MY-ROCHE-3045997

PATIENT
  Age: 50 Year
  Sex: Female

DRUGS (1)
  1. AVASTIN [Suspect]
     Active Substance: BEVACIZUMAB
     Indication: Ovarian cancer
     Route: 065

REACTIONS (3)
  - Metastases to bone [Unknown]
  - Drug ineffective [Unknown]
  - Cerebrovascular accident [Unknown]
